FAERS Safety Report 7052249-X (Version None)
Quarter: 2010Q4

REPORT INFORMATION
  Report Type: 
  Country: None (occurrence: None)
  Receive Date: 20101013
  Receipt Date: 20100930
  Transmission Date: 20110411
  Serious: Yes (Hospitalization)
  Sender: FDA-Public Use
  Company Number: 1000015887

PATIENT
  Age: 73 Year
  Sex: Female

DRUGS (9)
  1. ESCITALOPRAM [Suspect]
     Dosage: ORAL
     Route: 048
     Dates: start: 20100417, end: 20100807
  2. PREVISCAN (FLUINDIONE) (20 MILLIGRAM) [Suspect]
     Dosage: ORAL
     Route: 048
     Dates: start: 20100519, end: 20100807
  3. DIOVAN HCT [Suspect]
     Dosage: ORAL
     Route: 048
     Dates: start: 20100428, end: 20100807
  4. IMOVANE (ZOPICLONE) (TABLETS) [Suspect]
     Dosage: 7.5 MG (7.5 MG, 1 IN 1 D), ORAL
     Route: 048
     Dates: start: 20100503, end: 20100809
  5. TAHOR (ATORVASTATIN) (ATORVASTATIN) [Concomitant]
  6. AMLOR (AMLODIPINE) (AMLODIPINE) [Concomitant]
  7. TEMERIT (NEBIVOLOL HYDROCHLORIDE) (5 MILLIGRAM) (NEBIVOLOL HYDROCHLORI [Concomitant]
  8. DIANTALVIC (DI-GESIC) (DI-GESIC) [Concomitant]
  9. DITROPAN (OXYBUTYNIN HYDROCHLORIDE) (OXYBUTYNIN HYDROCHLORIDE) [Concomitant]

REACTIONS (3)
  - BLOOD BILIRUBIN INCREASED [None]
  - DRUG RASH WITH EOSINOPHILIA AND SYSTEMIC SYMPTOMS [None]
  - RENAL FAILURE ACUTE [None]
